FAERS Safety Report 8924917 (Version 1)
Quarter: 2012Q4

REPORT INFORMATION
  Report Type: Spontaneous
  Country: GB (occurrence: None)
  Receive Date: 20121116
  Receipt Date: 20121116
  Transmission Date: 20130627
  Serious: No
  Sender: FDA-Public Use
  Company Number: TUK2012A00290

PATIENT
  Age: 82 Year
  Sex: Male

DRUGS (3)
  1. PIOGLITAZONE HYDROCHLORIDE [Suspect]
     Route: 048
     Dates: start: 20110601, end: 20121017
  2. ACARBOSE [Concomitant]
  3. GLIPIZIDE [Concomitant]

REACTIONS (2)
  - Bladder cancer [None]
  - Haematuria [None]
